FAERS Safety Report 25961098 (Version 2)
Quarter: 2025Q4

REPORT INFORMATION
  Report Type: Spontaneous
  Country: CA (occurrence: CA)
  Receive Date: 20251027
  Receipt Date: 20251120
  Transmission Date: 20260118
  Serious: No
  Sender: ALEXION PHARMACEUTICALS
  Company Number: CA-AstraZeneca-CH-00976086AM

PATIENT
  Sex: Male
  Weight: 71.655 kg

DRUGS (7)
  1. BRILINTA [Suspect]
     Active Substance: TICAGRELOR
     Indication: Stent placement
     Dosage: 90 MILLIGRAM, BID
     Route: 065
     Dates: start: 202506
  2. Getting [Concomitant]
     Route: 065
  3. CLOPIDOGREL [Concomitant]
     Active Substance: CLOPIDOGREL BISULFATE
     Dosage: 75 MILLIGRAM, QD
     Route: 065
  4. ENTRESTO [Concomitant]
     Active Substance: SACUBITRIL\VALSARTAN
     Route: 065
  5. METOPROLOL [Concomitant]
     Active Substance: METOPROLOL
     Route: 065
  6. NAPROXEN [Concomitant]
     Active Substance: NAPROXEN
     Route: 065
  7. PLATELETS [Concomitant]
     Active Substance: HUMAN PLATELET, ALLOGENIC
     Route: 065

REACTIONS (19)
  - Myalgia [Unknown]
  - Heart rate irregular [Unknown]
  - Haemorrhage [Unknown]
  - Dyspnoea [Unknown]
  - Rash pruritic [Unknown]
  - Pain [Unknown]
  - Diarrhoea [Unknown]
  - Weight decreased [Unknown]
  - Muscular weakness [Unknown]
  - Lethargy [Unknown]
  - Inflammation [Unknown]
  - Arthralgia [Unknown]
  - Chapped lips [Unknown]
  - Ageusia [Unknown]
  - Fatigue [Unknown]
  - Balance disorder [Unknown]
  - Pain in extremity [Unknown]
  - Headache [Unknown]
  - Asthenia [Unknown]
